FAERS Safety Report 21170565 (Version 1)
Quarter: 2022Q3

REPORT INFORMATION
  Report Type: Spontaneous
  Country: ES (occurrence: ES)
  Receive Date: 20220804
  Receipt Date: 20220804
  Transmission Date: 20221027
  Serious: Yes (Other)
  Sender: FDA-Public Use
  Company Number: ES-CELLTRION INC.-2022ES012025

PATIENT

DRUGS (7)
  1. RITUXIMAB [Suspect]
     Active Substance: RITUXIMAB
     Indication: Pemphigoid
     Dosage: 1ST DOSE: A SINGLE CYCLE OF TWO INFUSIONS OF RITUXIMAB AT 500 MG AT AN INTERVAL OF 2 WEEKS
  2. RITUXIMAB [Suspect]
     Active Substance: RITUXIMAB
     Dosage: 2ND DOSE: A SINGLE CYCLE OF TWO INFUSIONS OF RITUXIMAB AT 500 MG AT AN INTERVAL OF 2 WEEKS
  3. PREDNISONE [Suspect]
     Active Substance: PREDNISONE
     Indication: Pemphigoid
     Dosage: 10 MG/D
  4. AZATHIOPRINE [Suspect]
     Active Substance: AZATHIOPRINE
     Indication: Pemphigoid
     Dosage: 50 MG/D
  5. METHYLPREDNISOLONE [Concomitant]
     Active Substance: METHYLPREDNISOLONE
     Indication: Premedication
     Dosage: 125 MG, THE DAY OF THE INFUSION AND THE DAY AFTER
     Route: 042
  6. DEXCHLORPHENIRAMINE [Concomitant]
     Active Substance: DEXCHLORPHENIRAMINE
     Indication: Premedication
     Dosage: 5 MG, THE DAY OF THE INFUSION AND THE DAY AFTER
     Route: 042
  7. ACETAMINOPHEN [Concomitant]
     Active Substance: ACETAMINOPHEN
     Indication: Premedication
     Dosage: 1 G, THE DAY OF THE INFUSION AND THE DAY AFTER
     Route: 042

REACTIONS (4)
  - Pemphigoid [Recovered/Resolved]
  - Disease recurrence [Recovered/Resolved]
  - Drug effective for unapproved indication [Recovered/Resolved]
  - Off label use [Unknown]
